FAERS Safety Report 10213676 (Version 2)
Quarter: 2015Q1

REPORT INFORMATION
  Report Type: Spontaneous
  Country: US (occurrence: None)
  Receive Date: 20140530
  Receipt Date: 20150327
  Transmission Date: 20150720
  Serious: Yes (Hospitalization)
  Sender: FDA-Public Use
  Company Number: UNT-2014-000846

PATIENT
  Age: 75 Year
  Sex: Female
  Weight: 70.7 kg

DRUGS (3)
  1. TRACLEER [Concomitant]
     Active Substance: BOSENTAN\BOSENTAN MONOHYDRATE
  2. REMODULIN [Suspect]
     Active Substance: TREPROSTINIL
     Indication: COR PULMONALE CHRONIC
     Dosage: 0.031 UG/KG, CONTINUING, SUBCUTAENOUS
     Route: 058
     Dates: start: 20131031
  3. REMODULIN [Suspect]
     Active Substance: TREPROSTINIL
     Indication: PULMONARY HYPERTENSION
     Dosage: 0.031 UG/KG, CONTINUING, SUBCUTAENOUS
     Route: 058
     Dates: start: 20131031

REACTIONS (3)
  - Fall [None]
  - Hip fracture [None]
  - Pump reservoir issue [None]

NARRATIVE: CASE EVENT DATE: 20140304
